FAERS Safety Report 5214030-3 (Version None)
Quarter: 2007Q1

REPORT INFORMATION
  Report Type: 
  Country: None (occurrence: None)
  Receive Date: 20070122
  Receipt Date: 20070116
  Transmission Date: 20070707
  Serious: Yes (Hospitalization)
  Sender: FDA-Public Use
  Company Number: US-ELI_LILLY_AND_COMPANY-US200609003767

PATIENT
  Sex: Male
  Weight: 84.353 kg

DRUGS (6)
  1. ZYPREXA [Suspect]
     Indication: SCHIZOPHRENIA, PARANOID TYPE
     Dosage: 20 MG, EACH EVENING
     Dates: start: 20020101
  2. CARBAMAZEPINE [Concomitant]
     Dates: start: 20020101
  3. DEPAKOTE [Concomitant]
     Dates: start: 20040101
  4. MIRTAZAPINE [Concomitant]
     Dates: start: 20030101
  5. VENLAFAXINE HCL [Concomitant]
     Dates: start: 20030101
  6. PREDNISOLONE [Concomitant]
     Dates: start: 20030101

REACTIONS (1)
  - CARDIAC DISORDER [None]
